FAERS Safety Report 14032458 (Version 1)
Quarter: 2017Q4

REPORT INFORMATION
  Report Type: Spontaneous
  Country: US (occurrence: US)
  Receive Date: 20171002
  Receipt Date: 20171002
  Transmission Date: 20180321
  Serious: No
  Sender: FDA-Public Use
  Company Number: US-BAYER-2017-185955

PATIENT
  Age: 85 Year
  Sex: Male
  Weight: 45 kg

DRUGS (2)
  1. CLARITIN [Suspect]
     Active Substance: LORATADINE
     Indication: DERMATITIS ALLERGIC
     Dosage: 1 DF, QD
     Route: 048
     Dates: start: 20170926, end: 20170926
  2. CLARITIN [Suspect]
     Active Substance: LORATADINE
     Indication: DERMATITIS ALLERGIC

REACTIONS (2)
  - Drug ineffective for unapproved indication [None]
  - Product use in unapproved indication [Unknown]

NARRATIVE: CASE EVENT DATE: 20170926
